FAERS Safety Report 16849220 (Version 1)
Quarter: 2019Q3

REPORT INFORMATION
  Report Type: Spontaneous
  Country: CN (occurrence: CN)
  Receive Date: 20190925
  Receipt Date: 20190925
  Transmission Date: 20191005
  Serious: Yes (Other)
  Sender: FDA-Public Use
  Company Number: CN-BEH-2019107121

PATIENT
  Age: 6 Year
  Sex: Male
  Weight: 30 kg

DRUGS (1)
  1. ALBURX [Suspect]
     Active Substance: ALBUMIN HUMAN
     Indication: FACE OEDEMA
     Dosage: 50 MILLILITER, TOT
     Route: 041
     Dates: start: 20190909, end: 20190909

REACTIONS (3)
  - Pruritus [Recovering/Resolving]
  - Exfoliative rash [Recovering/Resolving]
  - Rash erythematous [Recovering/Resolving]

NARRATIVE: CASE EVENT DATE: 20190909
